FAERS Safety Report 8585208-6 (Version None)
Quarter: 2012Q3

REPORT INFORMATION
  Report Type: 
  Country: None (occurrence: None)
  Receive Date: 20120810
  Receipt Date: 20120807
  Transmission Date: 20120928
  Serious: Yes (Hospitalization, Disabling, Other)
  Sender: FDA-Public Use
  Company Number: PHHY2010JP14371

PATIENT
  Sex: Female

DRUGS (11)
  1. AMLODIPINE [Concomitant]
     Dosage: 2.5 MG, DAILY
     Route: 048
     Dates: start: 20090411
  2. THEO-DUR [Concomitant]
     Dosage: 400 MG, DAILY
     Route: 048
     Dates: start: 20090411
  3. FLUTICASONE PROPIONATE [Concomitant]
     Indication: ASTHMA
     Dosage: 2 DF, DAILY
     Dates: start: 20100217
  4. PLAVIX [Concomitant]
     Dosage: 25 MG, UNK
     Route: 048
     Dates: start: 20111021
  5. CANDESARTAN CILEXETIL [Concomitant]
     Dosage: 2 MG, DAILY
     Route: 048
     Dates: start: 20090411
  6. PREDNISOLONE [Concomitant]
     Dosage: 10 MG, DAILY
     Route: 048
     Dates: start: 20090411, end: 20090519
  7. PLETAL [Concomitant]
     Dosage: 200 MG, UNK
     Route: 048
     Dates: start: 20111021
  8. ALLOPURINOL [Concomitant]
     Indication: HYPERURICAEMIA
     Dosage: 100 MG, DAILY
     Route: 048
     Dates: start: 20090430
  9. ZONISAMIDE [Concomitant]
     Dosage: 200 MG, UNK
     Route: 048
     Dates: start: 20111021
  10. LIPITOR [Concomitant]
     Dosage: 10 MG, UNK
     Route: 048
     Dates: start: 20111021
  11. TASIGNA [Suspect]
     Indication: CHRONIC MYELOID LEUKAEMIA
     Dosage: 800 MG, DAILY
     Route: 048
     Dates: start: 20090515

REACTIONS (4)
  - EOSINOPHIL COUNT INCREASED [None]
  - HEPATIC FUNCTION ABNORMAL [None]
  - DIABETES MELLITUS [None]
  - ALANINE AMINOTRANSFERASE INCREASED [None]
